FAERS Safety Report 8822925 (Version 1)
Quarter: 2012Q4

REPORT INFORMATION
  Report Type: 
  Country: BR (occurrence: BR)
  Receive Date: 20121003
  Receipt Date: 20121003
  Transmission Date: 20130627
  Serious: Yes (Life-Threatening, Other)
  Sender: FDA-Public Use
  Company Number: PHHY2012BR085302

PATIENT
  Age: 30 Year
  Sex: Female
  Weight: 70 kg

DRUGS (4)
  1. TEGRETOL [Suspect]
     Indication: CONVULSION
     Dosage: 2 DF, QD
     Route: 048
  2. HALDOL [Concomitant]
     Indication: CONVULSION
     Dosage: 2 DF, QD
     Route: 048
     Dates: start: 201201
  3. OLANZAPINE [Concomitant]
     Indication: ABNORMAL BEHAVIOUR
     Dosage: 1 tablet (2,5mg) in the morning and 1 tablet (10mg) at night
     Route: 048
     Dates: start: 201201
  4. RIVOTRIL [Concomitant]
     Indication: ABNORMAL BEHAVIOUR
     Dosage: 0.5 tablet in the morning and 1 tablet at night
     Route: 048
     Dates: start: 201201

REACTIONS (6)
  - Coma [Recovered/Resolved]
  - Epilepsy [Unknown]
  - Fall [Unknown]
  - Impulsive behaviour [Recovering/Resolving]
  - Abnormal behaviour [Recovering/Resolving]
  - Memory impairment [Recovering/Resolving]
